FAERS Safety Report 16197179 (Version 5)
Quarter: 2020Q4

REPORT INFORMATION
  Report Type: Spontaneous
  Country: US (occurrence: US)
  Receive Date: 20190415
  Receipt Date: 20201209
  Transmission Date: 20210113
  Serious: Yes (Hospitalization)
  Sender: FDA-Public Use
  Company Number: US-PFIZER INC-2019157754

PATIENT
  Sex: Female
  Weight: 74 kg

DRUGS (4)
  1. CARVEDILOL. [Concomitant]
     Active Substance: CARVEDILOL
     Dosage: UNK
  2. ESTRING [Suspect]
     Active Substance: ESTRADIOL
     Indication: BLADDER DISORDER
     Dosage: 2 MG, EVERY 3 MONTHS (CHANGES EVERY 2-3 MONTHS )
     Route: 067
  3. ESTRING [Suspect]
     Active Substance: ESTRADIOL
     Dosage: 2 MG, EVERY 3 MONTHS (CHANGES EVERY 2-3 MONTHS )
     Route: 067
  4. COREG [Concomitant]
     Active Substance: CARVEDILOL
     Indication: CARDIAC DISORDER
     Dosage: 20 MG, DAILY
     Dates: start: 1989

REACTIONS (5)
  - Body height decreased [Unknown]
  - Urinary tract infection [Recovered/Resolved]
  - Therapeutic response unexpected [Unknown]
  - Weight fluctuation [Unknown]
  - Off label use [Unknown]

NARRATIVE: CASE EVENT DATE: 2018
